FAERS Safety Report 19118005 (Version 1)
Quarter: 2021Q2

REPORT INFORMATION
  Report Type: Spontaneous
  Country: US (occurrence: US)
  Receive Date: 20210409
  Receipt Date: 20210409
  Transmission Date: 20210717
  Serious: Yes (Other)
  Sender: FDA-Public Use
  Company Number: US-SUNOVION-2021SUN001270

PATIENT
  Sex: Female

DRUGS (1)
  1. LATUDA [Suspect]
     Active Substance: LURASIDONE HYDROCHLORIDE
     Indication: BIPOLAR DISORDER
     Dosage: UNK
     Route: 048

REACTIONS (7)
  - Hypersensitivity [Recovering/Resolving]
  - Cough [Unknown]
  - Pneumonia [Unknown]
  - Ageusia [Recovering/Resolving]
  - Illness [Unknown]
  - Anosmia [Recovering/Resolving]
  - COVID-19 [Recovering/Resolving]
